FAERS Safety Report 24610996 (Version 1)
Quarter: 2024Q4

REPORT INFORMATION
  Report Type: Spontaneous
  Country: BR (occurrence: BR)
  Receive Date: 20241112
  Receipt Date: 20241112
  Transmission Date: 20250115
  Serious: Yes (Other)
  Sender: JOHNSON AND JOHNSON
  Company Number: BR-BAYER-2024A161345

PATIENT
  Age: 20 Year
  Sex: Female

DRUGS (1)
  1. VENTAVIS [Suspect]
     Active Substance: ILOPROST
     Indication: Product used for unknown indication
     Route: 065

REACTIONS (3)
  - Foetal distress syndrome [Unknown]
  - Premature delivery [Unknown]
  - Maternal exposure during pregnancy [Unknown]
